FAERS Safety Report 7761741-1 (Version None)
Quarter: 2011Q3

REPORT INFORMATION
  Report Type: 
  Country: None (occurrence: None)
  Receive Date: 20110919
  Receipt Date: 20110919
  Transmission Date: 20111222
  Serious: Yes (Hospitalization)
  Sender: FDA-Public Use
  Company Number: None

PATIENT
  Sex: Female
  Weight: 72.7 kg

DRUGS (2)
  1. CISPLATIN [Suspect]
     Dosage: 135 MG
     Dates: end: 20110824
  2. PACLITAXEL [Suspect]
     Dosage: 243 MG
     Dates: end: 20110823

REACTIONS (2)
  - ABDOMINAL PAIN [None]
  - PULMONARY EMBOLISM [None]
